FAERS Safety Report 6005460-0 (Version None)
Quarter: 2008Q4

REPORT INFORMATION
  Report Type: 
  Country: None (occurrence: None)
  Receive Date: 20081217
  Receipt Date: 20081212
  Transmission Date: 20090506
  Serious: Yes (Other)
  Sender: FDA-Public Use
  Company Number: CH-ROXANE LABORATORIES, INC.-2008-RO-00410RO

PATIENT
  Age: 50 Year
  Sex: Female
  Weight: 60 kg

DRUGS (3)
  1. DEXAMETHASONE [Suspect]
     Indication: EVANS SYNDROME
     Dosage: 40MG
     Route: 048
  2. VENOGLOBULIN [Suspect]
     Indication: EVANS SYNDROME
     Route: 042
  3. TRANEXAMIC ACID [Suspect]
     Indication: EVANS SYNDROME
     Dosage: 1.5G

REACTIONS (1)
  - VENOUS THROMBOSIS [None]
